FAERS Safety Report 9767689 (Version 1)
Quarter: 2013Q4

REPORT INFORMATION
  Report Type: Spontaneous
  Country: GB (occurrence: GB)
  Receive Date: 20131217
  Receipt Date: 20131217
  Transmission Date: 20140711
  Serious: Yes (Other)
  Sender: FDA-Public Use
  Company Number: GB-JNJFOC-20131208201

PATIENT
  Age: 67 Year
  Sex: Female
  Weight: 91.5 kg

DRUGS (17)
  1. XARELTO [Suspect]
     Indication: PRODUCT USED FOR UNKNOWN INDICATION
     Route: 048
     Dates: start: 20131125
  2. FENTANYL [Concomitant]
     Route: 065
     Dates: start: 20131023, end: 20131120
  3. CAPSAICIN [Concomitant]
     Route: 065
     Dates: start: 20130909, end: 20130919
  4. CO CODAMOL [Concomitant]
     Route: 065
     Dates: start: 20130819
  5. DIPROBASE [Concomitant]
     Route: 065
     Dates: start: 20130802, end: 20130830
  6. DOXAZOSIN [Concomitant]
     Route: 065
     Dates: start: 20130819
  7. FERROUS SULPHATE [Concomitant]
     Route: 065
     Dates: start: 20130819
  8. FUROSEMIDE [Concomitant]
     Route: 065
     Dates: start: 20130802
  9. HYDROXOCOBALAMIN [Concomitant]
     Route: 065
     Dates: start: 20130718, end: 20131003
  10. INFLUENZA VIRUS VACCINE POLYVALENT [Concomitant]
     Route: 065
     Dates: start: 20131025, end: 20131026
  11. LANSOPRAZOLE [Concomitant]
     Route: 065
     Dates: start: 20130819
  12. LANTUS [Concomitant]
     Route: 065
     Dates: start: 20130802
  13. METFORMIN [Concomitant]
     Route: 065
     Dates: start: 20130802
  14. RAMIPRIL [Concomitant]
     Route: 065
     Dates: start: 20130819
  15. ASACOL [Concomitant]
     Route: 065
     Dates: start: 20130916
  16. TINZAPARIN [Concomitant]
     Route: 065
     Dates: start: 20131125
  17. AMLODIPINE [Concomitant]
     Route: 065
     Dates: start: 20130819

REACTIONS (2)
  - Erythema nodosum [Recovering/Resolving]
  - Pain [Unknown]
